FAERS Safety Report 6379724-5 (Version None)
Quarter: 2009Q3

REPORT INFORMATION
  Report Type: 
  Country: None (occurrence: None)
  Receive Date: 20090924
  Receipt Date: 20090924
  Transmission Date: 20100115
  Serious: Yes (Hospitalization, Other)
  Sender: FDA-Public Use
  Company Number: None

PATIENT
  Sex: Male
  Weight: 75.2971 kg

DRUGS (1)
  1. TAMIFLU [Suspect]
     Indication: INFLUENZA
     Dosage: ONE PILL TWICE A DAY
     Dates: start: 20090916, end: 20090919

REACTIONS (3)
  - ABNORMAL BEHAVIOUR [None]
  - SPEECH DISORDER [None]
  - THINKING ABNORMAL [None]
